FAERS Safety Report 4404763-0 (Version None)
Quarter: 2004Q3

REPORT INFORMATION
  Report Type: 
  Country: None (occurrence: None)
  Receive Date: 20040722
  Receipt Date: 20040712
  Transmission Date: 20050211
  Serious: Yes (Hospitalization)
  Sender: FDA-Public Use
  Company Number: US-ROCHE-374257

PATIENT
  Age: 73 Year
  Sex: Male
  Weight: 93.4 kg

DRUGS (3)
  1. ROCALTROL [Suspect]
     Indication: PROSTATE CANCER
     Dosage: 0.5 MCG/KG.  ON DAY BEFORE CHEMOTHERAPY.
     Route: 048
     Dates: start: 20031216, end: 20040615
  2. ROCALTROL [Suspect]
     Dosage: 0.5 MCG/KG ON DAY BEFORE CHEMOTHERAPY.
     Route: 048
     Dates: start: 20040701
  3. TAXOTERE [Concomitant]
     Indication: PROSTATE CANCER
     Dosage: FOR SIX WEEKS IN AN EIGHT WEEK CYCLE.
     Route: 042
     Dates: start: 20031216

REACTIONS (1)
  - RECTAL HAEMORRHAGE [None]
